FAERS Safety Report 13244559 (Version 1)
Quarter: 2017Q1

REPORT INFORMATION
  Report Type: Spontaneous
  Country: US (occurrence: US)
  Receive Date: 20170217
  Receipt Date: 20170217
  Transmission Date: 20170428
  Serious: No
  Sender: FDA-Public Use
  Company Number: None

PATIENT

DRUGS (2)
  1. TRI-EST/PROG/TEST 15/175/1MG/QTSP [Suspect]
     Active Substance: ESTRADIOL\ESTRIOL\ESTRONE\PROGESTERONE\TESTOSTERONE
  2. TRIEST/PROG/TEST 15/175/1 MG/ML [Suspect]
     Active Substance: ESTRADIOL\ESTRIOL\ESTRONE\PROGESTERONE\TESTOSTERONE

REACTIONS (2)
  - Drug dispensing error [None]
  - Incorrect dose administered [None]
